FAERS Safety Report 17767560 (Version 1)
Quarter: 2020Q2

REPORT INFORMATION
  Report Type: Spontaneous
  Country: US (occurrence: US)
  Receive Date: 20200511
  Receipt Date: 20200511
  Transmission Date: 20200714
  Serious: Yes (Other)
  Sender: FDA-Public Use
  Company Number: US-UCBSA-2020019023

PATIENT
  Age: 42 Year
  Sex: Female
  Weight: 56 kg

DRUGS (9)
  1. DICYCLOMINE HYDROCHLORIDE. [Concomitant]
     Active Substance: DICYCLOMINE HYDROCHLORIDE
     Indication: ABDOMINAL PAIN UPPER
  2. IBUPROFEN. [Concomitant]
     Active Substance: IBUPROFEN
     Indication: PAIN
  3. LORTAB [HYDROCODONE BITARTRATE;PARACETAMOL;PROMETHAZINE HYDROCHLORIDE] [Suspect]
     Active Substance: ACETAMINOPHEN\HYDROCODONE\PROMETHAZINE
     Indication: PAIN
     Dosage: UNK
     Dates: start: 20180810, end: 20180811
  4. BISMUTH SUBSALICYLATE. [Concomitant]
     Active Substance: BISMUTH SUBSALICYLATE
     Indication: DYSPEPSIA
  5. LORAZEPAM. [Concomitant]
     Active Substance: LORAZEPAM
     Indication: EPILEPSY
  6. VIMPAT [Suspect]
     Active Substance: LACOSAMIDE
     Indication: EPILEPSY
     Dosage: 150 MILLIGRAM, 2X/DAY (BID)
     Route: 048
     Dates: start: 20180625
  7. MELATONIN [Concomitant]
     Active Substance: MELATONIN
     Indication: GENERAL PHYSICAL HEALTH DETERIORATION
  8. MEDROXYPROGESTERONE ACETATE. [Concomitant]
     Active Substance: MEDROXYPROGESTERONE ACETATE
     Indication: CONTRACEPTION
  9. TRIAMCINOLONE [Concomitant]
     Active Substance: TRIAMCINOLONE
     Indication: RASH

REACTIONS (8)
  - Rash pruritic [Recovered/Resolved]
  - Malaise [Unknown]
  - Foot fracture [Unknown]
  - Seizure [Unknown]
  - Fall [Recovered/Resolved]
  - Headache [Recovering/Resolving]
  - Vomiting [Unknown]
  - Abdominal pain [Recovered/Resolved]

NARRATIVE: CASE EVENT DATE: 2018
